FAERS Safety Report 6974897-5 (Version None)
Quarter: 2010Q3

REPORT INFORMATION
  Report Type: 
  Country: None (occurrence: None)
  Receive Date: 20100909
  Receipt Date: 20090109
  Transmission Date: 20110219
  Serious: No
  Sender: FDA-Public Use
  Company Number: US-WYE-H07662409

PATIENT
  Age: 45 Year
  Sex: Female

DRUGS (2)
  1. LYBREL [Suspect]
     Indication: PELVIC PAIN
     Route: 048
     Dates: start: 20081201
  2. LYBREL [Suspect]
     Indication: OVARIAN CYST

REACTIONS (3)
  - COELIAC DISEASE [None]
  - DRUG INEFFECTIVE [None]
  - NIGHT SWEATS [None]
